FAERS Safety Report 8765226 (Version 1)
Quarter: 2012Q4

REPORT INFORMATION
  Report Type: 
  Country: US (occurrence: US)
  Receive Date: 20120902
  Receipt Date: 20120902
  Transmission Date: 20130627
  Serious: No
  Sender: FDA-Public Use
  Company Number: US-PFIZER INC-2012212222

PATIENT
  Sex: Female

DRUGS (5)
  1. IBUPROFEN [Suspect]
     Dosage: UNK
  2. CORTISONE [Suspect]
     Dosage: UNK
  3. ALEVE [Suspect]
     Dosage: UNK
  4. VICODIN [Suspect]
     Dosage: UNK
  5. FLECTOR [Concomitant]
     Indication: EXOSTOSIS
     Dosage: UNK

REACTIONS (3)
  - Limb injury [Unknown]
  - Abdominal pain upper [Unknown]
  - Malaise [Unknown]
